FAERS Safety Report 10174740 (Version 1)
Quarter: 2014Q2

REPORT INFORMATION
  Report Type: Spontaneous
  Country: US (occurrence: None)
  Receive Date: 20140416
  Receipt Date: 20140416
  Transmission Date: 20141212
  Serious: Yes (Hospitalization)
  Sender: FDA-Public Use
  Company Number: 163-POMAL-13112394

PATIENT
  Age: 59 Year
  Sex: Male
  Weight: 83.9 kg

DRUGS (8)
  1. POMALYST [Suspect]
     Indication: PLASMA CELL MYELOMA
     Dosage: 2 MG , 21 IN 28 D, PO
     Dates: start: 20131003
  2. DEXAMETHASONE (DEXAMETHASONE) (TABLETS) [Concomitant]
  3. NORVASC [Concomitant]
  4. LOPRESSOR [Concomitant]
  5. ACYCLOVIR [Concomitant]
  6. PRILOSEC [Concomitant]
  7. OXYCODONE AND ACETAMINOPHEN [Concomitant]
  8. OXYCONTIN [Concomitant]

REACTIONS (1)
  - Renal failure [None]
